FAERS Safety Report 6316116-9 (Version None)
Quarter: 2009Q3

REPORT INFORMATION
  Report Type: 
  Country: None (occurrence: None)
  Receive Date: 20090819
  Receipt Date: 20090819
  Transmission Date: 20100115
  Serious: Yes (Life-Threatening)
  Sender: FDA-Public Use
  Company Number: None

PATIENT
  Age: 29 Year
  Sex: Female
  Weight: 99.7913 kg

DRUGS (1)
  1. ORTHO EVRA [Suspect]
     Indication: MENSTRUATION IRREGULAR
     Dosage: 1 PATCH WEEKLY TRANSDERMAL
     Route: 062
     Dates: start: 20090224, end: 20090701

REACTIONS (2)
  - INTRACRANIAL VENOUS SINUS THROMBOSIS [None]
  - TRANSVERSE SINUS THROMBOSIS [None]
